FAERS Safety Report 12140843 (Version 2)
Quarter: 2016Q2

REPORT INFORMATION
  Report Type: Spontaneous
  Country: US (occurrence: US)
  Receive Date: 20160303
  Receipt Date: 20160418
  Transmission Date: 20160815
  Serious: Yes (Other)
  Sender: FDA-Public Use
  Company Number: US-009507513-1603USA001120

PATIENT
  Age: 69 Year
  Sex: Female

DRUGS (1)
  1. DULERA [Suspect]
     Active Substance: FORMOTEROL FUMARATE DIHYDRATE\MOMETASONE FUROATE
     Dosage: STRENGTH: 200/5 MCG 2 PUFFS TWICE DAILY
     Route: 055

REACTIONS (5)
  - Drug dose omission [Unknown]
  - Product container issue [Unknown]
  - Shoulder arthroplasty [Unknown]
  - Arthropathy [Unknown]
  - Dyspnoea [Unknown]

NARRATIVE: CASE EVENT DATE: 20160113
